FAERS Safety Report 5603399-3 (Version None)
Quarter: 2008Q1

REPORT INFORMATION
  Report Type: 
  Country: None (occurrence: None)
  Receive Date: 20080122
  Receipt Date: 20080107
  Transmission Date: 20080703
  Serious: Yes (Death)
  Sender: FDA-Public Use
  Company Number: 2007002404

PATIENT
  Age: 70 Year
  Sex: Male

DRUGS (2)
  1. TARCEVA [Suspect]
     Indication: NON-SMALL CELL LUNG CANCER
     Dosage: (150 MG, QD), ORAL
     Route: 048
     Dates: start: 20071110
  2. TECHNETIUM TC99M METHLYENE DIPHOSPHONATE [Concomitant]

REACTIONS (7)
  - CARDIAC FAILURE [None]
  - DIARRHOEA [None]
  - DYSPNOEA [None]
  - HAEMATOCHEZIA [None]
  - RASH PUSTULAR [None]
  - RESPIRATORY FAILURE [None]
  - RESTLESSNESS [None]
